FAERS Safety Report 6805068-0 (Version None)
Quarter: 2010Q2

REPORT INFORMATION
  Report Type: 
  Country: None (occurrence: None)
  Receive Date: 20100628
  Receipt Date: 20070820
  Transmission Date: 20101027
  Serious: Yes (Hospitalization)
  Sender: FDA-Public Use
  Company Number: US-PFIZER INC-2007069500

PATIENT
  Age: 30 Year
  Sex: Male

DRUGS (6)
  1. GEODON [Suspect]
     Indication: SCHIZOPHRENIA
     Route: 048
     Dates: start: 20070406, end: 20070407
  2. LORAZEPAM [Concomitant]
     Route: 030
     Dates: start: 20070406, end: 20070406
  3. PRILOSEC [Concomitant]
     Route: 048
     Dates: start: 20070327, end: 20070416
  4. PROPRANOLOL [Concomitant]
     Route: 048
     Dates: start: 20070307, end: 20070413
  5. ZYPREXA [Concomitant]
     Route: 030
     Dates: start: 20070406, end: 20070406
  6. LIPITOR [Concomitant]
     Indication: DYSLIPIDAEMIA
     Route: 048
     Dates: start: 20070307, end: 20070416

REACTIONS (1)
  - RASH [None]
